FAERS Safety Report 11442793 (Version 5)
Quarter: 2015Q4

REPORT INFORMATION
  Report Type: Spontaneous
  Country: DK (occurrence: None)
  Receive Date: 20150901
  Receipt Date: 20151112
  Transmission Date: 20160304
  Serious: Yes (Death, Other)
  Sender: FDA-Public Use
  Company Number: DK-MDT-ADR-2015-01669

PATIENT
  Sex: Male

DRUGS (2)
  1. LIORESAL [Suspect]
     Active Substance: BACLOFEN
     Dosage: 125 MCG/DAY
  2. BACLOFEN ORAL [Suspect]
     Active Substance: BACLOFEN

REACTIONS (11)
  - Medical device site infection [None]
  - Hypersensitivity [None]
  - Anaphylactic shock [None]
  - Pocket erosion [None]
  - Myocardial infarction [None]
  - Drug hypersensitivity [None]
  - Medical device site inflammation [None]
  - Drug withdrawal syndrome [None]
  - Malaise [None]
  - Skin irritation [None]
  - Sepsis [None]
